FAERS Safety Report 7682472-2 (Version None)
Quarter: 2011Q3

REPORT INFORMATION
  Report Type: 
  Country: None (occurrence: None)
  Receive Date: 20110810
  Receipt Date: 20110725
  Transmission Date: 20111222
  Serious: Yes (Hospitalization)
  Sender: FDA-Public Use
  Company Number: 2011R1-46584

PATIENT
  Age: 74 Year
  Sex: Male

DRUGS (4)
  1. EFAVIRENZ [Concomitant]
  2. TENOFOVIR (TENOFOVIR) UNKNOWN [Suspect]
     Indication: HIV INFECTION
     Dosage: 300 MG, QD
  3. METFORMIN HCL [Suspect]
     Indication: TYPE 2 DIABETES MELLITUS
     Dosage: 850 MG, TID
  4. EMTRICITABINE [Concomitant]

REACTIONS (7)
  - DEHYDRATION [None]
  - NEPHROPATHY TOXIC [None]
  - LACTIC ACIDOSIS [None]
  - RENAL FAILURE ACUTE [None]
  - ABDOMINAL TENDERNESS [None]
  - PULMONARY HILAR ENLARGEMENT [None]
  - HAEMODIALYSIS [None]
